FAERS Safety Report 4534847-8 (Version None)
Quarter: 2004Q4

REPORT INFORMATION
  Report Type: 
  Country: None (occurrence: None)
  Receive Date: 20041222
  Receipt Date: 20040429
  Transmission Date: 20050328
  Serious: No
  Sender: FDA-Public Use
  Company Number: US-BRISTOL-MYERS SQUIBB COMPANY-12574794

PATIENT
  Age: 71 Year
  Sex: Female
  Weight: 57 kg

DRUGS (5)
  1. PRAVACHOL [Suspect]
     Dosage: THERAPY INTERRUPTED FOR ONE WEEK, THEN RESTARTED
  2. PLAVIX [Suspect]
     Indication: CAROTID ARTERY OCCLUSION
     Dosage: THERAPY WAS INTERRUPTED FOR ONE WEEK, THEN RESTARTED
     Route: 048
  3. THEO-24 [Concomitant]
     Dosage: DURATION OF THERAPY = ^YEARS^
  4. LOTREL [Concomitant]
     Dosage: 5/10 MG CAPLETS
  5. PLAQUENIL [Concomitant]

REACTIONS (2)
  - PRURITUS [None]
  - RASH [None]
